FAERS Safety Report 12868614 (Version 2)
Quarter: 2017Q1

REPORT INFORMATION
  Report Type: Report from Study
  Country: US (occurrence: US)
  Receive Date: 20161020
  Receipt Date: 20170124
  Transmission Date: 20170428
  Serious: No
  Sender: FDA-Public Use
  Company Number: US-AMGEN-USASL2016097334

PATIENT
  Age: 70 Year
  Sex: Male

DRUGS (1)
  1. REPATHA [Suspect]
     Active Substance: EVOLOCUMAB
     Indication: HYPERCHOLESTEROLAEMIA
     Dosage: 140 MG, Q2WK
     Route: 065

REACTIONS (8)
  - Hyperhidrosis [Unknown]
  - Diarrhoea [Unknown]
  - Pain in extremity [Unknown]
  - Syncope [Unknown]
  - Musculoskeletal disorder [Unknown]
  - Headache [Unknown]
  - Back pain [Unknown]
  - Dizziness [Unknown]
